FAERS Safety Report 19402969 (Version 2)
Quarter: 2021Q2

REPORT INFORMATION
  Report Type: Other
  Country: JP (occurrence: JP)
  Receive Date: 20210610
  Receipt Date: 20210611
  Transmission Date: 20210717
  Serious: Yes (Death)
  Sender: FDA-Public Use
  Company Number: JP-ROCHE-2844226

PATIENT
  Age: 53 Year
  Sex: Male

DRUGS (1)
  1. HERCEPTIN [Suspect]
     Active Substance: TRASTUZUMAB
     Indication: CHOLANGIOCARCINOMA
     Route: 041

REACTIONS (2)
  - Off label use [Unknown]
  - Disease progression [Fatal]
